FAERS Safety Report 15961827 (Version 4)
Quarter: 2019Q2

REPORT INFORMATION
  Report Type: Spontaneous
  Country: US (occurrence: US)
  Receive Date: 20190214
  Receipt Date: 20190418
  Transmission Date: 20190711
  Serious: Yes (Other)
  Sender: FDA-Public Use
  Company Number: US-PFIZER INC-2019067473

PATIENT
  Sex: Female

DRUGS (4)
  1. FAMOTIDINE. [Concomitant]
     Active Substance: FAMOTIDINE
     Dosage: UNK
  2. PEPCID [Suspect]
     Active Substance: FAMOTIDINE
     Dosage: UNK
  3. PEPCID AC [Concomitant]
     Active Substance: FAMOTIDINE
     Dosage: UNK
  4. NEXIUM [Suspect]
     Active Substance: ESOMEPRAZOLE MAGNESIUM
     Indication: GASTROOESOPHAGEAL REFLUX DISEASE
     Dosage: UNK, 2X/DAY
     Route: 048
     Dates: start: 1995, end: 2015

REACTIONS (1)
  - Chronic kidney disease [Not Recovered/Not Resolved]
